FAERS Safety Report 5806891-1 (Version None)
Quarter: 2008Q3

REPORT INFORMATION
  Report Type: 
  Country: None (occurrence: None)
  Receive Date: 20080711
  Receipt Date: 20080711
  Transmission Date: 20090109
  Serious: Yes (Death, Life-Threatening)
  Sender: FDA-Public Use
  Company Number: None

PATIENT
  Age: 73 Year
  Sex: Male
  Weight: 86.1834 kg

DRUGS (1)
  1. HEPARIN [Suspect]
     Dosage: EVERY DAY ALL DAY
     Dates: start: 20060112, end: 20060122

REACTIONS (3)
  - DOCUMENTED HYPERSENSITIVITY TO ADMINISTERED DRUG [None]
  - HAEMORRHAGE [None]
  - INCORRECT DOSE ADMINISTERED [None]
